FAERS Safety Report 5085785-6 (Version None)
Quarter: 2006Q3

REPORT INFORMATION
  Report Type: 
  Country: None (occurrence: None)
  Receive Date: 20060816
  Receipt Date: 20060802
  Transmission Date: 20061208
  Serious: Yes (Other)
  Sender: FDA-Public Use
  Company Number: PHBS2005DE18505

PATIENT
  Age: 35 Year
  Sex: Male

DRUGS (3)
  1. VISUDYNE [Suspect]
     Indication: ANISOMETROPIA
  2. VISUDYNE [Suspect]
     Indication: CHOROIDAL NEOVASCULARISATION
  3. TRIAMCINOLONE ACETONIDE [Concomitant]

REACTIONS (8)
  - CATARACT SUBCAPSULAR [None]
  - CHOROIDAL NEOVASCULARISATION [None]
  - CONDITION AGGRAVATED [None]
  - METAMORPHOPSIA [None]
  - REPERFUSION INJURY [None]
  - RETINAL DEGENERATION [None]
  - RETINAL DISORDER [None]
  - VISUAL ACUITY REDUCED [None]
